FAERS Safety Report 24642391 (Version 1)
Quarter: 2024Q4

REPORT INFORMATION
  Report Type: Spontaneous
  Country: US (occurrence: None)
  Receive Date: 20241119
  Receipt Date: 20241119
  Transmission Date: 20250114
  Serious: Yes (Death)
  Sender: Public
  Company Number: None

PATIENT
  Age: 62 Year
  Sex: Female

DRUGS (6)
  1. COLLAGENASE SANTYL [Suspect]
     Active Substance: COLLAGENASE CLOSTRIDIUM HISTOLYTICUM
     Indication: Wound
     Dosage: FREQUENCY : DAILY;?
     Route: 061
     Dates: start: 20240830
  2. ridaura 3 mg [Concomitant]
     Dates: start: 20241017
  3. zofran odt 8 mg [Concomitant]
     Dates: start: 20241017
  4. sulfasalazine ec 500 mg [Concomitant]
     Dates: start: 20241014
  5. NORCO [Concomitant]
     Active Substance: ACETAMINOPHEN\HYDROCODONE BITARTRATE
     Dates: start: 20241002
  6. FENTANYL [Concomitant]
     Active Substance: FENTANYL
     Dates: start: 20240928

REACTIONS (1)
  - Death [None]

NARRATIVE: CASE EVENT DATE: 20241119
